APPROVED DRUG PRODUCT: AMINOSYN-PF 10%
Active Ingredient: AMINO ACIDS
Strength: 10% (10GM/100ML)
Dosage Form/Route: INJECTABLE;INJECTION
Application: N019492 | Product #002
Applicant: OTSUKA ICU MEDICAL LLC
Approved: Oct 17, 1986 | RLD: No | RS: No | Type: RX